FAERS Safety Report 8086346-7 (Version None)
Quarter: 2012Q1

REPORT INFORMATION
  Report Type: 
  Country: None (occurrence: None)
  Receive Date: 20120128
  Receipt Date: 20110513
  Transmission Date: 20120608
  Serious: No
  Sender: FDA-Public Use
  Company Number: US-ABBOTT-11P-163-0724453-00

PATIENT
  Age: 66 Year
  Sex: Female

DRUGS (12)
  1. CELEBREX [Concomitant]
     Indication: RHEUMATOID ARTHRITIS
     Dosage: 200 MG BID
  2. METOPROLOL TARTRATE [Concomitant]
     Indication: HYPERTENSION
     Dosage: 25 MG BID
  3. METHOTREXATE [Concomitant]
     Indication: RHEUMATOID ARTHRITIS
     Dosage: 2.5 MG-6 TABS WEEKLY
  4. RESTASIS [Concomitant]
     Indication: DRY EYE
     Dosage: 1 DROP TO EACH EYE DAILY
  5. PROTONIX [Concomitant]
     Indication: GASTROOESOPHAGEAL REFLUX DISEASE
     Dosage: 40 MG-ONE DAILY
  6. COUMADIN [Concomitant]
     Indication: CARDIAC DISORDER
     Dosage: 5 MG DAILY
  7. MULTAQ [Concomitant]
     Indication: ATRIAL FIBRILLATION
     Dosage: 400 MG BID
  8. HUMIRA [Suspect]
     Indication: RHEUMATOID ARTHRITIS
     Dates: start: 20020101
  9. PREDNISONE TAB [Concomitant]
     Indication: RHEUMATOID ARTHRITIS
     Dosage: 5 MG-ONE TABLET DAILY
  10. LEVOXYL [Concomitant]
     Indication: HYPOTHYROIDISM
     Dosage: 0.1 MG DAILY
  11. LIPITOR [Concomitant]
     Indication: BLOOD CHOLESTEROL INCREASED
     Dosage: 40 MG DAILY
  12. FOLIC ACID [Concomitant]
     Indication: RHEUMATOID ARTHRITIS
     Dosage: 1 MG DAILY

REACTIONS (4)
  - DRUG DOSE OMISSION [None]
  - INCORRECT DOSE ADMINISTERED [None]
  - PAIN [None]
  - DEVICE MALFUNCTION [None]
